FAERS Safety Report 5376749-3 (Version None)
Quarter: 2007Q3

REPORT INFORMATION
  Report Type: 
  Country: None (occurrence: None)
  Receive Date: 20070703
  Receipt Date: 20070627
  Transmission Date: 20080115
  Serious: Yes (Death, Other)
  Sender: FDA-Public Use
  Company Number: PHEH2006US03508

PATIENT
  Sex: Female

DRUGS (2)
  1. ZOMETA [Suspect]
     Indication: BREAST CANCER
     Dosage: UNK,UNK
     Route: 042
  2. AREDIA [Suspect]
     Indication: BREAST CANCER
     Dosage: UNK,UNK

REACTIONS (12)
  - ANXIETY [None]
  - BONE DISORDER [None]
  - EATING DISORDER SYMPTOM [None]
  - EMOTIONAL DISTRESS [None]
  - INFECTION [None]
  - LIFE EXPECTANCY SHORTENED [None]
  - ORAL INTAKE REDUCED [None]
  - OSTEONECROSIS [None]
  - OVERDOSE [None]
  - PAIN [None]
  - PHYSICAL DISABILITY [None]
  - THERAPEUTIC PROCEDURE [None]
